FAERS Safety Report 12385948 (Version 6)
Quarter: 2016Q4

REPORT INFORMATION
  Report Type: Spontaneous
  Country: US (occurrence: US)
  Receive Date: 20160519
  Receipt Date: 20161014
  Transmission Date: 20170207
  Serious: Yes (Hospitalization, Other)
  Sender: FDA-Public Use
  Company Number: US-BAYER-2016-091514

PATIENT
  Age: 76 Year
  Sex: Male
  Weight: 78 kg

DRUGS (29)
  1. XOFIGO [Suspect]
     Active Substance: RADIUM RA-223 DICHLORIDE
     Indication: METASTASES TO BONE
     Dosage: UNK
     Dates: start: 20160406
  2. DIAZEPAM. [Concomitant]
     Active Substance: DIAZEPAM
     Dosage: 1 DF, TID
     Route: 048
  3. SERTRALINE [Concomitant]
     Active Substance: SERTRALINE HYDROCHLORIDE
     Dosage: 1 DF, QD
  4. TAMSULOSIN [Concomitant]
     Active Substance: TAMSULOSIN
     Dosage: 0.4 MG, QD
  5. XOFIGO [Suspect]
     Active Substance: RADIUM RA-223 DICHLORIDE
     Indication: PROSTATE CANCER STAGE IV
     Dosage: UNK
     Dates: start: 20160504
  6. XOFIGO [Suspect]
     Active Substance: RADIUM RA-223 DICHLORIDE
     Indication: PROSTATE CANCER STAGE IV
     Dosage: 115.10 UCI, ONCE EVERY 28 DAYS
     Route: 042
     Dates: start: 20160603
  7. VITAMIN D [Concomitant]
     Active Substance: CHOLECALCIFEROL
  8. ALPRAZOLAM. [Concomitant]
     Active Substance: ALPRAZOLAM
     Dosage: 1 DF, PRN
     Route: 048
  9. XOFIGO [Suspect]
     Active Substance: RADIUM RA-223 DICHLORIDE
     Indication: PROSTATE CANCER STAGE IV
     Dosage: UNK
     Dates: start: 20160309
  10. XOFIGO [Suspect]
     Active Substance: RADIUM RA-223 DICHLORIDE
     Indication: PROSTATE CANCER STAGE IV
     Dosage: UNK
     Dates: start: 20160714
  11. MAGNESIUM [Concomitant]
     Active Substance: MAGNESIUM
  12. HYDROCODONE W/ACETAMINOPHEN [Concomitant]
     Active Substance: ACETAMINOPHEN\HYDROCODONE BITARTRATE
     Dosage: 1 DF, EVERY 6 HOURS AS NEEDED
  13. XGEVA [Concomitant]
     Active Substance: DENOSUMAB
  14. MARIJUANA [Concomitant]
     Active Substance: CANNABIS SATIVA SUBSP. INDICA TOP
  15. NORCO [Concomitant]
     Active Substance: ACETAMINOPHEN\HYDROCODONE BITARTRATE
  16. FLOMAX (TAMSULOSIN) [Concomitant]
  17. DEGARELIX [Concomitant]
     Active Substance: DEGARELIX
  18. PREDNISONE. [Concomitant]
     Active Substance: PREDNISONE
  19. MELATONIN [Concomitant]
     Active Substance: MELATONIN
  20. FENTANYL. [Concomitant]
     Active Substance: FENTANYL
  21. XTANDI [Suspect]
     Active Substance: ENZALUTAMIDE
     Indication: PROSTATE CANCER
     Dosage: 160 MG, QD
     Route: 048
     Dates: start: 20150801, end: 20160525
  22. ASPIRIN [ACETYLSALICYLIC ACID] [Concomitant]
  23. OMEPRAZOLE. [Concomitant]
     Active Substance: OMEPRAZOLE
  24. PRAVASTATIN. [Concomitant]
     Active Substance: PRAVASTATIN
  25. SYNTHROID [Concomitant]
     Active Substance: LEVOTHYROXINE SODIUM
     Dosage: 1 DF, QD
     Route: 048
  26. CALCIUM CARBONATE. [Concomitant]
     Active Substance: CALCIUM CARBONATE
  27. ANUSOL HC [Concomitant]
     Active Substance: HYDROCORTISONE
     Dosage: UNK UNK, BID
     Route: 054
  28. NITROGLYCERIN. [Concomitant]
     Active Substance: NITROGLYCERIN
     Dosage: 0.4 MG, UNK
     Route: 060
  29. PRILOSEC [Concomitant]
     Active Substance: OMEPRAZOLE MAGNESIUM

REACTIONS (15)
  - Feeding disorder [Recovered/Resolved]
  - Insomnia [Recovering/Resolving]
  - Back pain [None]
  - Nasopharyngitis [None]
  - Nausea [Unknown]
  - Prostate cancer metastatic [None]
  - Pain [None]
  - Bowel movement irregularity [Not Recovered/Not Resolved]
  - Abdominal discomfort [None]
  - Fatigue [None]
  - Muscle twitching [Unknown]
  - Bone pain [Unknown]
  - Constipation [None]
  - Vomiting [Unknown]
  - Myalgia [Unknown]

NARRATIVE: CASE EVENT DATE: 20160809
